FAERS Safety Report 19602134 (Version 1)
Quarter: 2021Q3

REPORT INFORMATION
  Report Type: Spontaneous
  Country: TW (occurrence: TW)
  Receive Date: 20210723
  Receipt Date: 20210723
  Transmission Date: 20211014
  Serious: Yes (Other)
  Sender: FDA-Public Use
  Company Number: TW-ORGANON-O2107TWN001406

PATIENT
  Age: 79 Year
  Sex: Female

DRUGS (3)
  1. LOSARTAN POTASSIUM AND HYDROCHLOROTHIAZIDE [Suspect]
     Active Substance: HYDROCHLOROTHIAZIDE\LOSARTAN POTASSIUM
     Dosage: 100MG/12.5MG PER DAY
     Route: 048
     Dates: start: 201907, end: 202003
  2. BISOPROLOL [Concomitant]
     Active Substance: BISOPROLOL
     Dosage: 5 MG PER DAY
     Dates: start: 201907
  3. NIFEDIPINE. [Concomitant]
     Active Substance: NIFEDIPINE
     Dosage: 5 MG PER DAY
     Dates: start: 201907

REACTIONS (1)
  - Pemphigus [Recovered/Resolved with Sequelae]

NARRATIVE: CASE EVENT DATE: 201909
